FAERS Safety Report 24195571 (Version 1)
Quarter: 2024Q3

REPORT INFORMATION
  Report Type: Report from Study
  Country: AU (occurrence: AU)
  Receive Date: 20240809
  Receipt Date: 20240809
  Transmission Date: 20241016
  Serious: Yes (Disabling, Other)
  Sender: AMGEN
  Company Number: AU-AMGEN-AUSSP2024121663

PATIENT
  Sex: Female

DRUGS (3)
  1. REPATHA [Suspect]
     Active Substance: EVOLOCUMAB
     Indication: Primary hypercholesterolaemia
     Dosage: UNK, QMO
     Route: 058
     Dates: start: 202306, end: 202404
  2. REPATHA [Suspect]
     Active Substance: EVOLOCUMAB
     Dosage: UNK, Q2WK
     Route: 058
     Dates: start: 20240605
  3. REPATHA [Suspect]
     Active Substance: EVOLOCUMAB
     Dosage: 420 MILLIGRAM, QMO
     Route: 058
     Dates: start: 2024, end: 202406

REACTIONS (14)
  - Nausea [Not Recovered/Not Resolved]
  - Dizziness [Not Recovered/Not Resolved]
  - Headache [Not Recovered/Not Resolved]
  - Pain [Not Recovered/Not Resolved]
  - Fall [Unknown]
  - Neuralgia [Not Recovered/Not Resolved]
  - Multiple sclerosis [Unknown]
  - Contusion [Not Recovered/Not Resolved]
  - Choking sensation [Unknown]
  - Injection site erythema [Unknown]
  - Injection site pruritus [Unknown]
  - Swollen tongue [Unknown]
  - Dry mouth [Unknown]
  - Dysphagia [Unknown]

NARRATIVE: CASE EVENT DATE: 20240101
